FAERS Safety Report 25837504 (Version 1)
Quarter: 2025Q3

REPORT INFORMATION
  Report Type: Spontaneous
  Country: US (occurrence: US)
  Receive Date: 20250923
  Receipt Date: 20250923
  Transmission Date: 20251020
  Serious: Yes (Hospitalization)
  Sender: ELI LILLY AND COMPANY
  Company Number: US-ELI_LILLY_AND_COMPANY-US202509017454

PATIENT
  Sex: Female

DRUGS (1)
  1. FORTEO [Suspect]
     Active Substance: TERIPARATIDE
     Indication: Bone density abnormal
     Route: 065
     Dates: start: 20250619

REACTIONS (5)
  - Sepsis [Unknown]
  - Lactic acidosis [Unknown]
  - Leukocytosis [Unknown]
  - Gastritis [Unknown]
  - Blood urine present [Unknown]
